FAERS Safety Report 9129095 (Version 1)
Quarter: 2013Q1

REPORT INFORMATION
  Report Type: Spontaneous
  Country: US (occurrence: US)
  Receive Date: 20130125
  Receipt Date: 20130125
  Transmission Date: 20140127
  Serious: Yes (Other)
  Sender: FDA-Public Use
  Company Number: US-ELI_LILLY_AND_COMPANY-US201301007725

PATIENT
  Sex: Female

DRUGS (20)
  1. GEMCITABINE HYDROCHLORIDE [Suspect]
     Indication: LYMPHOMA
  2. GEMCITABINE HYDROCHLORIDE [Suspect]
     Indication: LYMPHOMA
  3. ADRIAMYCIN [Concomitant]
  4. ADRIAMYCIN [Concomitant]
  5. BLEOMYCIN [Concomitant]
  6. BLEOMYCIN [Concomitant]
  7. VINBLASTINE [Concomitant]
  8. VINBLASTINE [Concomitant]
  9. DACARBAZINE [Concomitant]
  10. DACARBAZINE [Concomitant]
  11. RITUXIMAB [Concomitant]
  12. RITUXIMAB [Concomitant]
  13. CYCLOPHOSPHAMIDE [Concomitant]
  14. CYCLOPHOSPHAMIDE [Concomitant]
  15. DOXORUBICIN [Concomitant]
  16. DOXORUBICIN [Concomitant]
  17. VINCRISTINE SULFATE [Concomitant]
  18. VINCRISTINE SULFATE [Concomitant]
  19. PREDNISONE [Concomitant]
  20. PREDNISONE [Concomitant]

REACTIONS (2)
  - Abortion spontaneous [Recovered/Resolved]
  - Exposure during pregnancy [Recovered/Resolved]
